FAERS Safety Report 5601136-X (Version None)
Quarter: 2008Q1

REPORT INFORMATION
  Report Type: 
  Country: None (occurrence: None)
  Receive Date: 20080124
  Receipt Date: 20080117
  Transmission Date: 20080703
  Serious: Yes (Hospitalization)
  Sender: FDA-Public Use
  Company Number: GB-JNJFOC-20080101015

PATIENT
  Age: 7 Year
  Sex: Female
  Weight: 30 kg

DRUGS (8)
  1. CHILDREN'S IBUPROFEN [Suspect]
     Route: 048
  2. CHILDREN'S IBUPROFEN [Suspect]
     Indication: ABDOMINAL PAIN
     Route: 048
  3. DICLOFENAC [Suspect]
     Indication: ANALGESIA
     Route: 054
  4. CEFTRIAXONE [Concomitant]
     Indication: URINARY TRACT INFECTION
     Route: 042
  5. NIFEDIPINE [Concomitant]
     Indication: HYPERTENSION
  6. ONDANSETRON [Concomitant]
     Indication: VOMITING
     Route: 042
  7. PARACETAMOL [Concomitant]
     Indication: PYREXIA
     Route: 048
  8. PARACETAMOL [Concomitant]
     Route: 054

REACTIONS (2)
  - RENAL FAILURE ACUTE [None]
  - RENAL TUBULAR NECROSIS [None]
